FAERS Safety Report 11645011 (Version 2)
Quarter: 2015Q4

REPORT INFORMATION
  Report Type: Report from Study
  Country: US (occurrence: US)
  Receive Date: 20151020
  Receipt Date: 20151105
  Transmission Date: 20160304
  Serious: Yes (Other)
  Sender: FDA-Public Use
  Company Number: US-GILEAD-2015-0170807

PATIENT
  Age: 48 Year
  Sex: Male

DRUGS (2)
  1. CLINDAMYCIN [Concomitant]
     Active Substance: CLINDAMYCIN\CLINDAMYCIN PHOSPHATE
     Indication: CHRONIC HEPATITIS C
     Dosage: 150 MG, TID
     Route: 048
  2. LEDIPASVIR/SOFOSBUVIR [Suspect]
     Active Substance: LEDIPASVIR\SOFOSBUVIR
     Indication: CHRONIC HEPATITIS C
     Dosage: 1 DF, UNK
     Route: 048

REACTIONS (9)
  - Abscess [Unknown]
  - Subcutaneous abscess [Unknown]
  - Diarrhoea [Unknown]
  - Headache [Unknown]
  - Nausea [Unknown]
  - Irritable bowel syndrome [Unknown]
  - Ingrown hair [Unknown]
  - Insomnia [Unknown]
  - Fatigue [Unknown]
